FAERS Safety Report 4882184-4 (Version None)
Quarter: 2006Q1

REPORT INFORMATION
  Report Type: 
  Country: None (occurrence: None)
  Receive Date: 20060112
  Receipt Date: 20060103
  Transmission Date: 20060701
  Serious: Yes (Hospitalization)
  Sender: FDA-Public Use
  Company Number: US-2005-009401

PATIENT
  Age: 58 Year
  Sex: Female

DRUGS (3)
  1. BETASERON [Suspect]
     Indication: MULTIPLE SCLEROSIS
     Dosage: SUBCUTANEOUS
     Route: 058
     Dates: start: 20050316, end: 20050513
  2. LITHIUM CARBONATE [Concomitant]
  3. POTASSIUM (POTASSIUM) [Concomitant]

REACTIONS (4)
  - BIPOLAR DISORDER [None]
  - BLOOD POTASSIUM DECREASED [None]
  - CONDITION AGGRAVATED [None]
  - THERAPEUTIC AGENT TOXICITY [None]
